FAERS Safety Report 10740825 (Version 2)
Quarter: 2015Q1

REPORT INFORMATION
  Report Type: Spontaneous
  Country: US (occurrence: US)
  Receive Date: 20150127
  Receipt Date: 20150202
  Transmission Date: 20150721
  Serious: No
  Sender: FDA-Public Use
  Company Number: US-PFIZER INC-2015028079

PATIENT
  Age: 27 Year
  Sex: Female
  Weight: 83 kg

DRUGS (1)
  1. XELJANZ [Suspect]
     Active Substance: TOFACITINIB CITRATE
     Indication: ARTHRITIS
     Dosage: 5 MG, 2X/DAY
     Route: 048
     Dates: start: 20141021, end: 20150109

REACTIONS (2)
  - Hypersensitivity [Unknown]
  - Weight increased [Unknown]

NARRATIVE: CASE EVENT DATE: 201412
